FAERS Safety Report 8201389-8 (Version None)
Quarter: 2012Q1

REPORT INFORMATION
  Report Type: 
  Country: None (occurrence: None)
  Receive Date: 20120305
  Receipt Date: 20120227
  Transmission Date: 20120608
  Serious: Yes (Hospitalization, Other)
  Sender: FDA-Public Use
  Company Number: 2012031416

PATIENT
  Age: 51 Year
  Sex: Male
  Weight: 54.4316 kg

DRUGS (27)
  1. AZITHROMYCIN [Concomitant]
  2. HUMULIN N (INSULIN HUMAN) [Concomitant]
  3. FLORINEF ACETATE (FLUDROCORTISONE ACETATE) [Concomitant]
  4. CYCLOSPORINE [Concomitant]
  5. COLISTIN (COLISTIN) [Concomitant]
  6. CALCIUM D (CALCIUM D) [Concomitant]
  7. VANCOMYCIN [Concomitant]
  8. RITALIN [Concomitant]
  9. FOSAMAX [Concomitant]
  10. HIZENTRA [Suspect]
     Indication: IMMUNODEFICIENCY COMMON VARIABLE
     Dosage: (8 G 2X/WEEK, 2 GM (10 ML) ON 2-3 SITES SUBCUTANEOUS)
     Route: 058
     Dates: start: 20120212, end: 20120212
  11. HUMULIN R [Concomitant]
  12. LOPRESSOR [Concomitant]
  13. ALBUTEROL [Concomitant]
  14. PREDNISONE TAB [Concomitant]
  15. BACTRIM [Concomitant]
  16. MULTIVITAMIN (MULTIVITAMIN /00831701/) [Concomitant]
  17. WELLBUTRIN [Concomitant]
  18. PRAVACHOL [Concomitant]
  19. PANCREASE MT (NORTASE) [Concomitant]
  20. CLOTRIMAZOLE [Concomitant]
  21. ACTIGALL [Concomitant]
  22. PROTONIX [Concomitant]
  23. MUPIROCIN [Concomitant]
  24. FLONASE [Concomitant]
  25. ASCORBIC ACID [Concomitant]
  26. FERROUS SULFATE TAB [Concomitant]
  27. VITAMIN E [Concomitant]

REACTIONS (1)
  - INFUSION SITE INFECTION [None]
